FAERS Safety Report 15980779 (Version 1)
Quarter: 2019Q1

REPORT INFORMATION
  Report Type: Spontaneous
  Country: US (occurrence: US)
  Receive Date: 20190219
  Receipt Date: 20190219
  Transmission Date: 20190418
  Serious: Yes (Hospitalization)
  Sender: FDA-Public Use
  Company Number: US-CELGENEUS-USA-20190204223

PATIENT
  Sex: Female

DRUGS (2)
  1. THALOMID [Suspect]
     Active Substance: THALIDOMIDE
     Dosage: 50 MILLIGRAM
     Route: 048
     Dates: start: 201901
  2. THALOMID [Suspect]
     Active Substance: THALIDOMIDE
     Indication: ANGIOPATHY
     Dosage: 100 MILLIGRAM
     Route: 048
     Dates: start: 201803

REACTIONS (1)
  - Gastrointestinal haemorrhage [Unknown]
